FAERS Safety Report 16735868 (Version 15)
Quarter: 2024Q4

REPORT INFORMATION
  Report Type: Spontaneous
  Country: US (occurrence: US)
  Receive Date: 20190823
  Receipt Date: 20241126
  Transmission Date: 20250114
  Serious: Yes (Hospitalization, Other)
  Sender: PFIZER
  Company Number: US-PFIZER INC-2019360210

PATIENT
  Age: 82 Year
  Sex: Female
  Weight: 55.329 kg

DRUGS (9)
  1. XELJANZ XR [Suspect]
     Active Substance: TOFACITINIB CITRATE
     Indication: Rheumatoid arthritis
     Dosage: 11 MG, DAILY
     Route: 048
     Dates: start: 202008
  2. XELJANZ XR [Suspect]
     Active Substance: TOFACITINIB CITRATE
     Dosage: 11 MG, DAILY
     Route: 048
     Dates: start: 2022
  3. ACETAMINOPHEN [Concomitant]
     Active Substance: ACETAMINOPHEN
     Dosage: UNK
  4. AMOXIL [Concomitant]
     Active Substance: AMOXICILLIN
     Dosage: UNK
  5. FOLIC ACID [Concomitant]
     Active Substance: FOLIC ACID
     Dosage: UNK
  6. KENALOG [Concomitant]
     Active Substance: TRIAMCINOLONE ACETONIDE
     Dosage: UNK
  7. MUCINEX [Concomitant]
     Active Substance: GUAIFENESIN
     Dosage: UNK
  8. PROBIOTICS NOS [Concomitant]
     Active Substance: PROBIOTICS NOS
     Dosage: UNK
  9. TROLAMINE [Concomitant]
     Active Substance: TROLAMINE
     Dosage: UNK

REACTIONS (13)
  - Arrhythmia [Unknown]
  - Internal haemorrhage [Recovered/Resolved]
  - Malaise [Unknown]
  - Gastritis [Unknown]
  - Anaemia [Recovered/Resolved]
  - Herpes zoster [Recovering/Resolving]
  - Hypotension [Unknown]
  - Pain [Unknown]
  - Oropharyngeal pain [Unknown]
  - Peripheral coldness [Unknown]
  - Nasopharyngitis [Unknown]
  - Headache [Unknown]
  - Fatigue [Unknown]

NARRATIVE: CASE EVENT DATE: 20210731
